FAERS Safety Report 14263800 (Version 2)
Quarter: 2017Q4

REPORT INFORMATION
  Report Type: Spontaneous
  Country: SI (occurrence: SI)
  Receive Date: 20171208
  Receipt Date: 20171221
  Transmission Date: 20180321
  Serious: No
  Sender: FDA-Public Use
  Company Number: SI-PFIZER INC-2017521422

PATIENT
  Age: 48 Year
  Sex: Female

DRUGS (5)
  1. FAMPRIDINE [Concomitant]
     Active Substance: DALFAMPRIDINE
     Indication: FATIGUE
     Dosage: 10 MG, BID
  2. TOLTERODINE [Concomitant]
     Active Substance: TOLTERODINE
     Indication: MICTURITION DISORDER
     Dosage: 4 MG, QD (1 TABLET IN MORNING)
  3. FINGOLIMOD. [Concomitant]
     Active Substance: FINGOLIMOD
     Indication: MULTIPLE SCLEROSIS
     Dosage: 0.5 MG, QD
  4. PREGABALIN. [Suspect]
     Active Substance: PREGABALIN
     Indication: PAIN IN EXTREMITY
     Dosage: 150 MG, BID
  5. ESCITALOPRAM [Concomitant]
     Active Substance: ESCITALOPRAM OXALATE
     Indication: ANTIDEPRESSANT THERAPY
     Dosage: 10 MG, QD (1 TABLET IN MORNING)

REACTIONS (2)
  - Drug effect incomplete [Unknown]
  - Fatigue [Unknown]
